FAERS Safety Report 6348639-0 (Version None)
Quarter: 2009Q3

REPORT INFORMATION
  Report Type: 
  Country: None (occurrence: None)
  Receive Date: 20090908
  Receipt Date: 20090824
  Transmission Date: 20100115
  Serious: Yes (Hospitalization, Other)
  Sender: FDA-Public Use
  Company Number: 2009SP001985

PATIENT
  Age: 71 Year
  Sex: Male

DRUGS (12)
  1. XOPENEX [Suspect]
     Indication: CHRONIC OBSTRUCTIVE PULMONARY DISEASE
     Dosage: 1.25 MG/3ML; BID; INHALATION
     Route: 055
     Dates: start: 20010101, end: 20090731
  2. XOPENEX [Suspect]
     Indication: CHRONIC OBSTRUCTIVE PULMONARY DISEASE
     Dosage: 1.25 MG/3ML; BID; INHALATION
     Route: 055
     Dates: start: 20090801, end: 20090817
  3. XOPENEX [Suspect]
     Indication: CHRONIC OBSTRUCTIVE PULMONARY DISEASE
     Dosage: 1.25 MG/3ML; BID; INHALATION
     Route: 055
     Dates: start: 20090817, end: 20090821
  4. XOPENEX [Suspect]
     Indication: CHRONIC OBSTRUCTIVE PULMONARY DISEASE
     Dosage: 1.25 MG/3ML; BID; INHALATION
     Route: 055
     Dates: start: 20090821
  5. AZITHROMYCIN [Concomitant]
  6. OXYGEN [Concomitant]
  7. ASPIRIN [Concomitant]
  8. METFORMIN HCL [Concomitant]
  9. MELOXICAM [Concomitant]
  10. IPRATROPIUM [Concomitant]
  11. ALBUTEROL [Concomitant]
  12. DUONEB [Concomitant]

REACTIONS (3)
  - CEREBROVASCULAR STENOSIS [None]
  - EXPIRED DRUG ADMINISTERED [None]
  - TRANSIENT ISCHAEMIC ATTACK [None]
